FAERS Safety Report 4379121-8 (Version None)
Quarter: 2004Q2

REPORT INFORMATION
  Report Type: 
  Country: None (occurrence: None)
  Receive Date: 20040610
  Receipt Date: 20040525
  Transmission Date: 20050107
  Serious: Yes (Other)
  Sender: FDA-Public Use
  Company Number: US-JNJFOC-20040506201

PATIENT
  Age: 53 Year
  Sex: Male
  Weight: 65.7716 kg

DRUGS (3)
  1. TYLENOL W/ CODEINE NO. 3 [Suspect]
     Indication: DRUG USE FOR UNKNOWN INDICATION
  2. BEER (ALL OTHER THERAPEUTIC PRODUCTS) [Suspect]
     Indication: DRUG USE FOR UNKNOWN INDICATION
  3. GLUCOSAMINE (GLUCOSAMINE) [Concomitant]

REACTIONS (6)
  - ALCOHOL USE [None]
  - DRUG SCREEN POSITIVE [None]
  - EJACULATION DISORDER [None]
  - ERECTILE DYSFUNCTION [None]
  - LOSS OF CONSCIOUSNESS [None]
  - SEXUAL ASSAULT VICTIM [None]
